FAERS Safety Report 25637249 (Version 1)
Quarter: 2025Q3

REPORT INFORMATION
  Report Type: Spontaneous
  Country: US (occurrence: US)
  Receive Date: 20250804
  Receipt Date: 20250804
  Transmission Date: 20251020
  Serious: No
  Sender: AUROBINDO
  Company Number: US-AUROBINDO-AUR-APL-2024-033177

PATIENT
  Age: 82 Year
  Sex: Female
  Weight: 74.8 kg

DRUGS (1)
  1. CEFPODOXIME [Suspect]
     Active Substance: CEFPODOXIME
     Indication: Urinary tract infection
     Dosage: UNK UNK, ONCE A DAY (2 TABLET PER DAY)
     Route: 065
     Dates: start: 20190509

REACTIONS (6)
  - Adverse drug reaction [Unknown]
  - Oedema peripheral [Unknown]
  - Hypersensitivity [Unknown]
  - Pain in extremity [Unknown]
  - Headache [Unknown]
  - Hypertension [Unknown]
